FAERS Safety Report 9922675 (Version 4)
Quarter: 2014Q2

REPORT INFORMATION
  Report Type: Report from Study
  Country: NL (occurrence: NL)
  Receive Date: 20140225
  Receipt Date: 20140530
  Transmission Date: 20141212
  Serious: Yes (Death, Hospitalization)
  Sender: FDA-Public Use
  Company Number: NL-ABBVIE-11P-114-0881266-00

PATIENT
  Age: 63 Year
  Sex: Male
  Weight: 90 kg

DRUGS (6)
  1. LUCRIN DEPOT 11.25 MG [Suspect]
     Indication: PROSTATE CANCER
     Route: 058
     Dates: start: 20110906
  2. METFORMIN [Concomitant]
     Indication: DIABETES MELLITUS
     Dosage: PCH TABLET
     Route: 048
     Dates: start: 2010
  3. SIMVASTATINE [Concomitant]
     Indication: BLOOD CHOLESTEROL INCREASED
     Route: 048
     Dates: start: 201104
  4. OMEPRAZOL [Concomitant]
     Indication: GASTRIC DISORDER
     Dosage: CAPSULE EC
     Route: 048
     Dates: start: 20140210
  5. OMEPRAZOL [Concomitant]
     Indication: PROPHYLAXIS
  6. TOLBUTAMIDE [Concomitant]
     Indication: DIABETES MELLITUS
     Route: 048

REACTIONS (5)
  - Death [Fatal]
  - Colon cancer [Recovering/Resolving]
  - Hot flush [Recovered/Resolved]
  - Fatigue [Not Recovered/Not Resolved]
  - Weight decreased [Unknown]
